FAERS Safety Report 9507318 (Version 1)
Quarter: 2013Q1

REPORT INFORMATION
  Report Type: Spontaneous
  Country: US (occurrence: None)
  Receive Date: 20130305
  Receipt Date: 20130305
  Transmission Date: 20140127
  Serious: Yes (Hospitalization)
  Sender: FDA-Public Use
  Company Number: 163-21880-09061353

PATIENT
  Age: 76 Year
  Sex: Male
  Weight: 76.66 kg

DRUGS (6)
  1. REVLIMID (LENALIDOMIDE) (15 MILLIGRAM, CAPSULES) [Suspect]
     Indication: PLASMA CELL MYELOMA
     Dosage: 15 MG, DAY 1-14 OF EACH CHEMO CYCLE, PO
     Route: 048
     Dates: start: 20090216, end: 20090303
  2. VELCADE (BORTEZOMIB) [Concomitant]
  3. DEXAMETHASONE (DEXAMETHASONE) [Concomitant]
  4. SYNTHROID (LEVOTHYROXINE SODIUM) [Concomitant]
  5. NEXIUM [Concomitant]
  6. TYLENOL (PARACETAMOL) [Concomitant]

REACTIONS (4)
  - Renal failure acute [None]
  - Weight decreased [None]
  - Dehydration [None]
  - Herpes zoster [None]
